FAERS Safety Report 17103177 (Version 1)
Quarter: 2019Q4

REPORT INFORMATION
  Report Type: Spontaneous
  Country: GR (occurrence: GR)
  Receive Date: 20191203
  Receipt Date: 20191203
  Transmission Date: 20200122
  Serious: Yes (Other)
  Sender: FDA-Public Use
  Company Number: GR-ROCHE-2484078

PATIENT
  Age: 64 Year
  Sex: Female

DRUGS (1)
  1. LUCENTIS [Suspect]
     Active Substance: RANIBIZUMAB
     Indication: MACULAR OEDEMA
     Dosage: 0.5 MG (3.5 MM TO 4.0 MM)
     Route: 031

REACTIONS (2)
  - Macular oedema [Unknown]
  - Disease recurrence [Unknown]
